FAERS Safety Report 8093108-3 (Version None)
Quarter: 2012Q1

REPORT INFORMATION
  Report Type: 
  Country: None (occurrence: None)
  Receive Date: 20120128
  Receipt Date: 20111003
  Transmission Date: 20120608
  Serious: No
  Sender: FDA-Public Use
  Company Number: US-ABBOTT-11P-163-0849644-00

PATIENT
  Age: 24 Year
  Sex: Female

DRUGS (3)
  1. SPIRONOLACTONE [Concomitant]
     Indication: MENSTRUAL CYCLE MANAGEMENT
     Dosage: QD
  2. METFORMIN HCL [Concomitant]
     Indication: PRODUCT USED FOR UNKNOWN INDICATION
  3. HUMIRA [Suspect]
     Indication: PSORIASIS
     Dates: start: 20110627

REACTIONS (4)
  - PAIN [None]
  - PSORIASIS [None]
  - HEADACHE [None]
  - VISUAL IMPAIRMENT [None]
